FAERS Safety Report 17848517 (Version 1)
Quarter: 2020Q2

REPORT INFORMATION
  Report Type: Spontaneous
  Country: IR (occurrence: IR)
  Receive Date: 20200602
  Receipt Date: 20200602
  Transmission Date: 20200714
  Serious: No
  Sender: FDA-Public Use
  Company Number: IR-LUPIN PHARMACEUTICALS INC.-2019-03261

PATIENT
  Age: 56 Year
  Sex: Male

DRUGS (3)
  1. CYTARABINE. [Concomitant]
     Active Substance: CYTARABINE
     Indication: ACUTE MYELOID LEUKAEMIA
     Dosage: 100 MILLIGRAM/SQ. METER, QD
     Route: 042
  2. PIOGLITAZONE. [Suspect]
     Active Substance: PIOGLITAZONE
     Indication: ADJUVANT THERAPY
     Dosage: 45 MILLIGRAM, QD (PILL)
     Route: 048
  3. DAUNORUBICIN [Concomitant]
     Active Substance: DAUNORUBICIN
     Indication: ACUTE MYELOID LEUKAEMIA
     Dosage: 60 MILLIGRAM/SQ. METER, QD
     Route: 042

REACTIONS (3)
  - Myopathy [Not Recovered/Not Resolved]
  - Blood creatine phosphokinase increased [Unknown]
  - Off label use [Unknown]
